FAERS Safety Report 4358316-3 (Version None)
Quarter: 2004Q2

REPORT INFORMATION
  Report Type: 
  Country: None (occurrence: None)
  Receive Date: 20040514
  Receipt Date: 20000308
  Transmission Date: 20050107
  Serious: Yes (Hospitalization)
  Sender: FDA-Public Use
  Company Number: US-MERCK-00030893

PATIENT
  Age: 68 Year
  Sex: Female

DRUGS (5)
  1. [THERAPY UNSPECIFIED] [Concomitant]
     Route: 065
  2. [THERAPY UNSPECIFIED] [Concomitant]
     Route: 048
  3. ESTROGENIC PREPARATIONS (COMPOSITION UNSPECIFIED) [Concomitant]
     Route: 065
  4. LITHIUM CARBONATE [Suspect]
     Route: 065
  5. VIOXX [Suspect]
     Indication: OSTEOARTHRITIS
     Route: 048
     Dates: start: 19990801, end: 19991201

REACTIONS (7)
  - ATAXIA [None]
  - CONFUSIONAL STATE [None]
  - DIALYSIS [None]
  - DISORIENTATION [None]
  - DRUG INTERACTION [None]
  - DRUG LEVEL INCREASED [None]
  - THERAPEUTIC AGENT TOXICITY [None]
